FAERS Safety Report 11366108 (Version 1)
Quarter: 2015Q3

REPORT INFORMATION
  Report Type: Spontaneous
  Country: US (occurrence: US)
  Receive Date: 20150811
  Receipt Date: 20150811
  Transmission Date: 20151125
  Serious: Yes (Hospitalization)
  Sender: FDA-Public Use
  Company Number: PHEH2015US014981

PATIENT
  Age: 21 Year
  Sex: Female

DRUGS (1)
  1. COARTEM [Suspect]
     Active Substance: ARTEMETHER\LUMEFANTRINE
     Indication: MALARIA
     Dosage: 1 DF, UNK
     Route: 048
     Dates: start: 20140830, end: 20140901

REACTIONS (3)
  - Pyrexia [Unknown]
  - Drug ineffective [Unknown]
  - Plasmodium falciparum infection [Unknown]

NARRATIVE: CASE EVENT DATE: 20141001
